FAERS Safety Report 8417317 (Version 6)
Quarter: 2013Q2

REPORT INFORMATION
  Report Type: Spontaneous
  Country: US (occurrence: US)
  Receive Date: 20120220
  Receipt Date: 20130522
  Transmission Date: 20140414
  Serious: Yes (Other)
  Sender: FDA-Public Use
  Company Number: US-ROCHE-1040750

PATIENT
  Sex: Female

DRUGS (2)
  1. BONIVA [Suspect]
     Indication: OSTEOPOROSIS
     Route: 065
     Dates: start: 20081020, end: 20100303
  2. ACTONEL [Suspect]
     Indication: PRODUCT USED FOR UNKNOWN INDICATION
     Route: 065
     Dates: end: 20100908

REACTIONS (8)
  - Osteonecrosis of jaw [Unknown]
  - Anxiety [Unknown]
  - Humerus fracture [Unknown]
  - Arthralgia [Unknown]
  - Depression [Unknown]
  - Osteonecrosis [Unknown]
  - Ankle fracture [Unknown]
  - Dental caries [Unknown]
